FAERS Safety Report 11211264 (Version 1)
Quarter: 2015Q2

REPORT INFORMATION
  Report Type: Spontaneous
  Country: US (occurrence: None)
  Receive Date: 20150619
  Receipt Date: 20150619
  Transmission Date: 20150821
  Serious: Yes (Hospitalization)
  Sender: FDA-Public Use
  Company Number: None

PATIENT
  Age: 73 Year
  Sex: Female
  Weight: 91.2 kg

DRUGS (15)
  1. OXYCODONE/APAP [Suspect]
     Active Substance: ACETAMINOPHEN\OXYCODONE HYDROCHLORIDE
     Indication: BACK PAIN
     Dosage: 5/325MG 1-2 Q4H PRN
     Route: 048
  2. AMIODARONE [Concomitant]
     Active Substance: AMIODARONE
  3. ELIQUIS [Concomitant]
     Active Substance: APIXABAN
  4. COREG [Concomitant]
     Active Substance: CARVEDILOL
  5. GLUCOSAMINE [Concomitant]
     Active Substance: GLUCOSAMINE
  6. CA+D [Concomitant]
  7. LASIX [Concomitant]
     Active Substance: FUROSEMIDE
  8. LIDODERM [Concomitant]
     Active Substance: LIDOCAINE
  9. ZESTRIL [Concomitant]
     Active Substance: LISINOPRIL
  10. OXYCODONE [Suspect]
     Active Substance: OXYCODONE
     Indication: BACK PAIN
     Dosage: 10MG  Q12HR  PO?RECENT
     Route: 048
  11. CALCITONIN [Concomitant]
     Active Substance: CALCITONIN
  12. PLETAL [Concomitant]
     Active Substance: CILOSTAZOL
  13. LAMICTAL [Concomitant]
     Active Substance: LAMOTRIGINE
  14. PROZAC [Concomitant]
     Active Substance: FLUOXETINE HYDROCHLORIDE
  15. SYNTHROID [Concomitant]
     Active Substance: LEVOTHYROXINE SODIUM

REACTIONS (5)
  - Acute kidney injury [None]
  - Mental status changes [None]
  - Urinary tract infection [None]
  - Encephalopathy [None]
  - Overdose [None]

NARRATIVE: CASE EVENT DATE: 20150126
